FAERS Safety Report 5915127-2 (Version None)
Quarter: 2008Q4

REPORT INFORMATION
  Report Type: 
  Country: None (occurrence: None)
  Receive Date: 20081008
  Receipt Date: 20080926
  Transmission Date: 20090506
  Serious: Yes (Hospitalization)
  Sender: FDA-Public Use
  Company Number: 6046036

PATIENT
  Age: 87 Year
  Sex: Female

DRUGS (16)
  1. BISOPROLOL FUMARATE [Suspect]
     Indication: ATRIAL FIBRILLATION
     Dosage: 5 MG (5 MG, 1 IN 1 D) 1) ORAL
     Route: 048
     Dates: end: 20080524
  2. DIGOXIN TAB [Suspect]
     Indication: ATRIAL FIBRILLATION
     Dosage: 0.25 MG (0.25 MG, 1 IN 1 D) 1) ORAL
     Route: 048
     Dates: end: 20080522
  3. FLECAINIDE ACETATE [Suspect]
     Indication: ATRIAL FIBRILLATION
     Dosage: 2 DOSAGE FORMS (2 DOSAGE FORMS, 1 D) ORAL  AURICU
     Route: 048
     Dates: start: 20080522, end: 20080524
  4. ADALATE (10 MG, TABLET) (NIFEDIPINE) [Concomitant]
  5. RENITEC (20 MG, TABLET) (ENALAPRIL) [Concomitant]
  6. LASIX [Concomitant]
  7. DISCOTRINE (10 MG, SOLUTION FOR INJECTION)(GLYCERYL TRINITRATE) [Concomitant]
  8. PREVISCAN (TABLET) (FLUINDIONE) [Concomitant]
  9. DIFFU K (CAPSULE) (POTASSIUM CHLORIDE) [Concomitant]
  10. AERIUS (5 MG, TABLET) (DESLORATADINE) [Concomitant]
  11. SPECIAFOLDINE (5 MG, TABLET) (FOLIC ACID) [Concomitant]
  12. BECOTIDE (250 MICROGRAM, PRESSURISED INHALATION) (BECLOMETASONE DIPROP [Concomitant]
  13. EUROBIOL (25000 IU (INTERNATIONAL UNIT))(PANCREATIN) [Concomitant]
  14. DUPHALAC [Concomitant]
  15. DI-ANTALVIC (CAPSULE)(PARACETAMOL, DEXTROPROPDXYPHENE) [Concomitant]
  16. VOLTARENE EMULGEL (GEL) (DICLOFENAC SODIUM) [Concomitant]

REACTIONS (7)
  - ATRIAL FIBRILLATION [None]
  - ATRIOVENTRICULAR BLOCK COMPLETE [None]
  - BRADYARRHYTHMIA [None]
  - DRUG INTERACTION [None]
  - MALAISE [None]
  - OVERDOSE [None]
  - VERTIGO [None]
